FAERS Safety Report 10641439 (Version 1)
Quarter: 2014Q4

REPORT INFORMATION
  Report Type: Spontaneous
  Country: FR (occurrence: None)
  Receive Date: 20141208
  Receipt Date: 20141208
  Transmission Date: 20150529
  Serious: Yes (Hospitalization)
  Sender: FDA-Public Use
  Company Number: SP08641

PATIENT
  Age: 72 Year
  Sex: Male

DRUGS (9)
  1. NOVORAPID [Concomitant]
     Active Substance: INSULIN ASPART
  2. CRESTOR [Concomitant]
     Active Substance: ROSUVASTATIN CALCIUM
  3. XIFAXAN [Suspect]
     Active Substance: RIFAXIMIN
     Dosage: 1200 MG (1200 MG, 1 IN 1 D), ORAL
     Route: 048
     Dates: start: 201407, end: 20141030
  4. AVLOCARDYL [Concomitant]
     Active Substance: PROPRANOLOL HYDROCHLORIDE
  5. LEVEMIR [Concomitant]
     Active Substance: INSULIN DETEMIR
  6. NEXAVAR [Suspect]
     Active Substance: SORAFENIB
     Indication: HEPATIC CANCER
     Dosage: 400 MG (400 MG, 1 IN 1 D), ORAL
     Route: 048
     Dates: start: 20141010, end: 20141031
  7. NEXIUM [Concomitant]
     Active Substance: ESOMEPRAZOLE MAGNESIUM
  8. APROVEL [Concomitant]
     Active Substance: IRBESARTAN
  9. XIFAXAN [Suspect]
     Active Substance: RIFAXIMIN
     Indication: HEPATIC ENCEPHALOPATHY
     Dosage: 1200 MG (1200 MG, 1 IN 1 D), ORAL
     Route: 048
     Dates: start: 201407, end: 20141030

REACTIONS (3)
  - Purpura [None]
  - Thrombocytopenia [None]
  - Anaemia [None]

NARRATIVE: CASE EVENT DATE: 20141020
